FAERS Safety Report 9343954 (Version 1)
Quarter: 2013Q2

REPORT INFORMATION
  Report Type: Spontaneous
  Country: GB (occurrence: GB)
  Receive Date: 20130612
  Receipt Date: 20130612
  Transmission Date: 20140414
  Serious: Yes (Hospitalization, Other)
  Sender: FDA-Public Use
  Company Number: GB-BAYER-2013-071287

PATIENT
  Age: 75 Year
  Sex: Female

DRUGS (1)
  1. ULTRAVIST 300 [Suspect]
     Indication: ANGIOGRAM

REACTIONS (4)
  - Aortic disorder [Recovered/Resolved]
  - Extravasation [Recovered/Resolved]
  - Chest pain [Recovered/Resolved]
  - Medication error [None]
